FAERS Safety Report 24254984 (Version 2)
Quarter: 2024Q4

REPORT INFORMATION
  Report Type: Spontaneous
  Country: US (occurrence: US)
  Receive Date: 20240827
  Receipt Date: 20241210
  Transmission Date: 20250115
  Serious: No
  Sender: PFIZER
  Company Number: US-PFIZER INC-PV202300133471

PATIENT
  Age: 66 Year
  Sex: Female

DRUGS (3)
  1. IBRANCE [Suspect]
     Active Substance: PALBOCICLIB
     Indication: Breast cancer female
     Dosage: 125 MG, CYCLIC (DAILY ON DAYS 1-21 OF EACH 28 DAY CYCLE)
     Route: 048
     Dates: start: 2000
  2. IBRANCE [Suspect]
     Active Substance: PALBOCICLIB
     Indication: Bone cancer
     Dosage: 125 MG, CYCLIC (SAME TIME DAILY ON DAYS 1-21 OF EACH 26 DAY CYCLE, SWALLOW WHOLE)
     Route: 048
  3. IBRANCE [Suspect]
     Active Substance: PALBOCICLIB
     Dosage: 100 MG, CYCLIC (SAME TIME DAILY ON DAYS 1-21 OF EACH 28 DAY CYCLE, SWALLOW WHOLE)
     Route: 048

REACTIONS (3)
  - Asthenia [Unknown]
  - Off label use [Unknown]
  - Product use issue [Unknown]
